FAERS Safety Report 5805140-8 (Version None)
Quarter: 2008Q3

REPORT INFORMATION
  Report Type: 
  Country: None (occurrence: None)
  Receive Date: 20080707
  Receipt Date: 20080624
  Transmission Date: 20090109
  Serious: Yes (Death)
  Sender: FDA-Public Use
  Company Number: 8028390

PATIENT
  Age: 78 Year
  Sex: Female
  Weight: 81.81 kg

DRUGS (10)
  1. KEPPRA [Suspect]
     Indication: CONVULSION
     Dosage: 500 MG 2/D PO
     Route: 048
  2. KEPPRA [Suspect]
     Indication: POST PROCEDURAL COMPLICATION
     Dosage: 500 MG 2/D PO
     Route: 048
  3. KEPPRA [Suspect]
     Indication: CONVULSION
     Dosage: 1500 MG 2/D IV
     Route: 042
  4. KEPPRA [Suspect]
     Indication: POST PROCEDURAL COMPLICATION
     Dosage: 1500 MG 2/D IV
     Route: 042
  5. DILANTIN [Concomitant]
  6. NADOLOL [Concomitant]
  7. ASPIRIN [Concomitant]
  8. CENTRUM [Concomitant]
  9. HYDROCHLOROTHIAZIDE [Concomitant]
  10. LISINOPRIL [Concomitant]

REACTIONS (5)
  - ACTIVITIES OF DAILY LIVING IMPAIRED [None]
  - ASTHENIA [None]
  - CONVULSION [None]
  - DRUG INEFFECTIVE [None]
  - SOMNOLENCE [None]
